FAERS Safety Report 15154375 (Version 1)
Quarter: 2018Q3

REPORT INFORMATION
  Report Type: Spontaneous
  Country: AR (occurrence: AR)
  Receive Date: 20180717
  Receipt Date: 20180717
  Transmission Date: 20181010
  Serious: Yes (Death, Hospitalization, Other)
  Sender: FDA-Public Use
  Company Number: AR-PFIZER INC-2018286882

PATIENT
  Age: 65 Year

DRUGS (2)
  1. MEPREDNISONA [Suspect]
     Active Substance: MEPREDNISONE
     Dosage: 2 MG, DAILY
     Dates: start: 2014
  2. TOFACITINIB CITRATE [Suspect]
     Active Substance: TOFACITINIB CITRATE
     Indication: RHEUMATOID ARTHRITIS
     Dosage: 5 MG, 2X/DAY
     Dates: start: 2014

REACTIONS (3)
  - Multiple organ dysfunction syndrome [Fatal]
  - Respiratory arrest [Fatal]
  - Cerebrovascular accident [Fatal]

NARRATIVE: CASE EVENT DATE: 201807
